FAERS Safety Report 4821088-X (Version None)
Quarter: 2005Q4

REPORT INFORMATION
  Report Type: 
  Country: None (occurrence: None)
  Receive Date: 20051104
  Receipt Date: 20051028
  Transmission Date: 20060501
  Serious: Yes (Hospitalization)
  Sender: FDA-Public Use
  Company Number: GB-MERCK-0510GBR00175

PATIENT
  Age: 72 Year
  Sex: Male

DRUGS (7)
  1. ZOCOR [Suspect]
     Indication: HYPERCHOLESTEROLAEMIA
     Route: 048
     Dates: start: 20050114, end: 20050816
  2. ARIPIPRAZOLE [Suspect]
     Indication: PSYCHOTIC DISORDER
     Route: 048
     Dates: start: 20050125, end: 20050816
  3. DIVALPROEX SODIUM [Concomitant]
     Indication: MOOD SWINGS
     Route: 048
     Dates: start: 20050130
  4. ZOPICLONE [Concomitant]
     Indication: INSOMNIA
     Route: 048
     Dates: start: 20020125
  5. NIFEDIPINE [Concomitant]
     Indication: ANGINA PECTORIS
     Route: 048
     Dates: start: 20050114
  6. ASPIRIN [Concomitant]
     Indication: ANGINA PECTORIS
     Route: 065
     Dates: start: 20050114
  7. FERROUS SULFATE [Concomitant]
     Indication: ANAEMIA
     Route: 065
     Dates: start: 20050114

REACTIONS (4)
  - BLOOD CREATINE PHOSPHOKINASE INCREASED [None]
  - COORDINATION ABNORMAL [None]
  - MUSCULOSKELETAL STIFFNESS [None]
  - PAIN IN EXTREMITY [None]
